FAERS Safety Report 23465684 (Version 1)
Quarter: 2024Q1

REPORT INFORMATION
  Report Type: Spontaneous
  Country: US (occurrence: None)
  Receive Date: 20240131
  Receipt Date: 20240131
  Transmission Date: 20240409
  Serious: Yes (Hospitalization)
  Sender: FDA-Public Use
  Company Number: None

PATIENT
  Sex: Female

DRUGS (37)
  1. EMGALITY [Suspect]
     Active Substance: GALCANEZUMAB-GNLM
     Indication: Migraine
     Dosage: 120 MG/ML SUBCUTANEOUS??INJECT 1 PEN UNDER THE SKIN (SUBCUTANEOUS INJECTION) EVERY 30 DAYS
     Route: 058
     Dates: start: 20231019
  2. ACYCLOVIR OIN 5% [Concomitant]
  3. ACYCLOVIR TAB 400MG [Concomitant]
  4. ASPIRIN CHW 81MG [Concomitant]
  5. ATORVASTATIN TAB 40MG [Concomitant]
  6. CLOTRIMAZOLE TRO 10MG [Concomitant]
  7. CYCLOBENZAPR TAB 10MG [Concomitant]
  8. DULOXETINE CAP 30MG [Concomitant]
  9. DULOXETINE CAP 60MG [Concomitant]
  10. FLUCONAZOLE TAB 150MG [Concomitant]
  11. FOLIC ACID TAB 1MG [Concomitant]
  12. GABAPENTIN TAB 600MG [Concomitant]
  13. HUMIRA CF 40MG/0.4ML PEN (2=2) [Concomitant]
  14. HYDROCORT OIN 2.5% [Concomitant]
  15. HYDROXYZ PAM CAP 25MG [Concomitant]
  16. LAMOTRIGINE TAB 25MG [Concomitant]
  17. METHOTREXATE TAB 2.5MG [Concomitant]
  18. METHYLPRED TAB 4MG [Concomitant]
  19. MYRBETRIQ TAB 50MG [Concomitant]
  20. NAPROXEN TAB 500MG [Concomitant]
  21. NEO/POLY/HC SOL 1% OTIC [Concomitant]
  22. NURTEC ODT 75MG [Concomitant]
  23. ONDANSETRON TAB 4MG ODT [Concomitant]
  24. OXYCODONE TAB 5MG [Concomitant]
  25. POT CITRA ER TAB 1080MG [Concomitant]
  26. PREDNISONE TAB 20MG [Concomitant]
  27. PREDNISONE TAB 50MG [Concomitant]
  28. PROMETHAZINE SYP DM [Concomitant]
  29. RIFAMPIN CAP 300MG [Concomitant]
  30. RIZATRIPTAN TAB 10MG [Concomitant]
  31. TRAMADOL HCL TAB 50MG [Concomitant]
  32. TRAZODONE TAB 150MG [Concomitant]
  33. TRIAMCINOLON CRE 0.025% [Concomitant]
  34. TRIAMCINOLON CRE 0.1% [Concomitant]
  35. VALACYCLOVIR TAB 1GM [Concomitant]
  36. VALSARTAN TAB 40MG [Concomitant]
  37. VENTOLIN HFA AER [Concomitant]

REACTIONS (1)
  - Hospitalisation [None]
